FAERS Safety Report 7221636-9 (Version None)
Quarter: 2011Q1

REPORT INFORMATION
  Report Type: 
  Country: None (occurrence: None)
  Receive Date: 20110112
  Receipt Date: 20110107
  Transmission Date: 20110831
  Serious: Yes (Life-Threatening, Hospitalization)
  Sender: FDA-Public Use
  Company Number: GB-ROCHE-730404

PATIENT
  Sex: Male
  Weight: 78 kg

DRUGS (13)
  1. MYCOPHENOLATE MOFETIL [Suspect]
     Indication: ANTI-NEUTROPHIL CYTOPLASMIC ANTIBODY POSITIVE VASCULITIS
     Dosage: FREQUENCY: TDS
     Route: 065
     Dates: start: 20100602
  2. AZATHIOPRINE [Concomitant]
     Dates: start: 20101217
  3. LANSOPRAZOLE [Concomitant]
     Route: 048
     Dates: start: 20101224
  4. AZATHIOPRINE [Concomitant]
     Dates: start: 20100602
  5. BUMETANIDE [Concomitant]
     Route: 048
     Dates: start: 20101224
  6. ALENDRONATE SODIUM [Concomitant]
     Route: 048
     Dates: start: 20101224
  7. PREDNISOLONE [Concomitant]
     Route: 048
     Dates: start: 20101224
  8. MYCOPHENOLATE MOFETIL [Suspect]
     Route: 065
     Dates: start: 20100630
  9. ARANESP [Concomitant]
     Route: 042
     Dates: start: 20101229
  10. PARACETAMOL [Concomitant]
     Route: 048
     Dates: start: 20101224
  11. FOLIC ACID [Concomitant]
     Route: 048
     Dates: start: 20101224
  12. VITAMIN B [Concomitant]
     Route: 048
     Dates: start: 20101224
  13. BISOPROLOL [Concomitant]
     Route: 048
     Dates: start: 20101224

REACTIONS (2)
  - PNEUMONIA [None]
  - CARDIAC ARREST [None]
